FAERS Safety Report 8371994-7 (Version None)
Quarter: 2012Q2

REPORT INFORMATION
  Report Type: 
  Country: None (occurrence: None)
  Receive Date: 20120518
  Receipt Date: 20120511
  Transmission Date: 20120825
  Serious: Yes (Other)
  Sender: FDA-Public Use
  Company Number: US-ROCHE-GNE324611

PATIENT
  Sex: Female

DRUGS (8)
  1. OMALIZUMAB [Suspect]
     Indication: ASTHMA
     Route: 058
     Dates: start: 20110903
  2. COMBIPATCH [Concomitant]
  3. FLOVENT HFA [Concomitant]
  4. HYDROCORTISONE [Concomitant]
  5. BENADRYL [Concomitant]
  6. ZYRTEC [Concomitant]
  7. RELPAX [Concomitant]
  8. VENTOLIN HFA [Concomitant]

REACTIONS (4)
  - INJECTION SITE SWELLING [None]
  - INJECTION SITE HAEMATOMA [None]
  - INJECTION SITE ERYTHEMA [None]
  - CHILLS [None]
